FAERS Safety Report 8906793 (Version 3)
Quarter: 2013Q4

REPORT INFORMATION
  Report Type: Spontaneous
  Country: TR (occurrence: TR)
  Receive Date: 20121114
  Receipt Date: 20131202
  Transmission Date: 20140711
  Serious: Yes (Hospitalization)
  Sender: FDA-Public Use
  Company Number: TR-JNJFOC-20121101906

PATIENT
  Age: 36 Year
  Sex: Male

DRUGS (8)
  1. RISPERIDONE [Suspect]
     Indication: SCHIZOPHRENIA
     Route: 048
  2. RISPERIDONE [Suspect]
     Indication: SCHIZOPHRENIA
     Route: 048
  3. FLUPHENAZINE [Suspect]
     Indication: SCHIZOPHRENIA
     Route: 065
  4. OLANZAPINE [Suspect]
     Indication: SCHIZOPHRENIA
     Route: 065
  5. QUETIAPINE [Suspect]
     Indication: SCHIZOPHRENIA
     Route: 065
  6. QUETIAPINE [Suspect]
     Indication: SCHIZOPHRENIA
     Route: 065
  7. ARIPIPRAZOLE [Suspect]
     Indication: SCHIZOPHRENIA
     Route: 065
  8. ARIPIPRAZOLE [Suspect]
     Indication: SCHIZOPHRENIA
     Route: 065

REACTIONS (3)
  - Suicide attempt [Recovered/Resolved]
  - Treatment noncompliance [Recovered/Resolved]
  - Insomnia [Recovered/Resolved]
